FAERS Safety Report 12161442 (Version 1)
Quarter: 2016Q1

REPORT INFORMATION
  Report Type: Report from Study
  Country: FR (occurrence: FR)
  Receive Date: 20160308
  Receipt Date: 20160308
  Transmission Date: 20160526
  Serious: Yes (Other)
  Sender: FDA-Public Use
  Company Number: FR-ROCHE-1722098

PATIENT

DRUGS (5)
  1. 5-FU [Suspect]
     Active Substance: FLUOROURACIL
     Indication: COLORECTAL CANCER METASTATIC
     Dosage: ON DAY 1
     Route: 040
  2. 5-FU [Suspect]
     Active Substance: FLUOROURACIL
     Dosage: 46HR INFUSION DAY 1-2
     Route: 042
  3. BEVACIZUMAB [Suspect]
     Active Substance: BEVACIZUMAB
     Indication: COLORECTAL CANCER METASTATIC
     Dosage: ON DAY 1
     Route: 042
  4. LEUCOVORIN CALCIUM. [Suspect]
     Active Substance: LEUCOVORIN CALCIUM
     Indication: COLORECTAL CANCER METASTATIC
     Dosage: ON DAY 1
     Route: 042
  5. IRINOTECAN [Suspect]
     Active Substance: IRINOTECAN
     Indication: COLORECTAL CANCER METASTATIC
     Dosage: ON DAY 1
     Route: 042

REACTIONS (13)
  - Febrile neutropenia [Unknown]
  - Diarrhoea [Unknown]
  - Mucosal inflammation [Unknown]
  - Nausea [Unknown]
  - Epistaxis [Unknown]
  - Hypertension [Unknown]
  - Cerebral ischaemia [Unknown]
  - Alopecia [Unknown]
  - Embolism venous [Unknown]
  - Embolism arterial [Unknown]
  - Vomiting [Unknown]
  - Neutropenia [Unknown]
  - Anaemia [Unknown]
